FAERS Safety Report 9173729 (Version 1)
Quarter: 2013Q1

REPORT INFORMATION
  Report Type: Spontaneous
  Country: US (occurrence: None)
  Receive Date: 20130318
  Receipt Date: 20130318
  Transmission Date: 20140127
  Serious: Yes (Disabling)
  Sender: FDA-Public Use
  Company Number: None

PATIENT
  Age: 44 Year
  Sex: Male
  Weight: 74.84 kg

DRUGS (1)
  1. CIMZIA [Suspect]
     Indication: CROHN^S DISEASE
     Dosage: 400MG EVERY 4 WEEKS SQ
     Route: 058
     Dates: start: 20110301, end: 20120601

REACTIONS (8)
  - Arthralgia [None]
  - Impaired work ability [None]
  - Quality of life decreased [None]
  - Local swelling [None]
  - Local swelling [None]
  - Muscular weakness [None]
  - Transient ischaemic attack [None]
  - Eye disorder [None]
